FAERS Safety Report 18212252 (Version 5)
Quarter: 2024Q3

REPORT INFORMATION
  Report Type: Spontaneous
  Country: IE (occurrence: IE)
  Receive Date: 20200831
  Receipt Date: 20240711
  Transmission Date: 20241016
  Serious: Yes (Life-Threatening, Hospitalization, Other)
  Sender: PFIZER
  Company Number: IE-MEDAC-2020001308

PATIENT
  Age: 32 Year
  Sex: Male

DRUGS (25)
  1. CYTARABINE [Suspect]
     Active Substance: CYTARABINE
     Indication: Bone marrow conditioning regimen
     Dosage: UNK, (BEAM CONSOLIDATION REGIMEN)
  2. VINBLASTINE [Suspect]
     Active Substance: VINBLASTINE
     Indication: Hodgkin^s disease stage IV
     Dosage: UNK, CYCLIC, (ABVD REGIMEN; 2 CYCLES)
  3. DACARBAZINE [Suspect]
     Active Substance: DACARBAZINE
     Indication: Hodgkin^s disease stage IV
     Dosage: UNK, CYCLIC, (ABVD REGIMEN, 2 CYCLES)
  4. CARBOPLATIN [Suspect]
     Active Substance: CARBOPLATIN
     Indication: Hodgkin^s disease stage IV
     Dosage: UNK, CYCLIC, (ICE REGIMEN; 3 CYCLES)
  5. ALEMTUZUMAB [Suspect]
     Active Substance: ALEMTUZUMAB
     Indication: Bone marrow conditioning regimen
     Dosage: UNK, (CONDITIONING REGIMEN)
  6. PREDNISOLONE [Suspect]
     Active Substance: PREDNISOLONE
     Indication: Graft versus host disease in skin
     Dosage: 10 MG, 1X/DAY, (FOR SKIN GRAFT VERSUS HOST DISEASE BEACOPP REGIMEN; 2 CYCLES)
  7. PREDNISOLONE [Suspect]
     Active Substance: PREDNISOLONE
     Indication: Hodgkin^s disease stage IV
  8. ADRIAMYCIN [Suspect]
     Active Substance: DOXORUBICIN HYDROCHLORIDE
     Indication: Hodgkin^s disease stage IV
     Dosage: UNK, CYCLIC, ABVD REGIMEN AND BEACOPP REGIMEN ABVD REGIMEN; 2 CYCLES. BEACOPP REGIMEN; 2 CYCLES
  9. ADRIAMYCIN [Suspect]
     Active Substance: DOXORUBICIN HYDROCHLORIDE
     Dosage: UNK
  10. PROCARBAZINE [Suspect]
     Active Substance: PROCARBAZINE
     Indication: Hodgkin^s disease stage IV
     Dosage: UNK, CYCLIC, (BEACOPP REGIMEN; 2 CYCLES)
  11. ONCOVIN [Suspect]
     Active Substance: VINCRISTINE SULFATE
     Indication: Hodgkin^s disease stage IV
     Dosage: UNK, CYCLIC, (BEACOPP REGIMEN; 2 CYCLES)
  12. BRENTUXIMAB VEDOTIN [Suspect]
     Active Substance: BRENTUXIMAB VEDOTIN
     Indication: Hodgkin^s disease stage IV
     Dosage: UNK, (SALVAGE THERAPY)
  13. CYCLOSPORINE [Suspect]
     Active Substance: CYCLOSPORINE
     Dosage: 50 MG, 2X/DAY
  14. CARMUSTINE [Suspect]
     Active Substance: CARMUSTINE
     Indication: Bone marrow conditioning regimen
     Dosage: UNK, (BEAM CONSOLIDATION REGIMEN)
  15. MELPHALAN [Suspect]
     Active Substance: MELPHALAN
     Indication: Bone marrow conditioning regimen
     Dosage: UNK, (BEAM CONSOLIDATION REGIMEN)
  16. ETOPOSIDE [Suspect]
     Active Substance: ETOPOSIDE
     Indication: Bone marrow conditioning regimen
     Dosage: UNK, CYCLIC, (BEACOPP REGIMEN; 2 CYCLES, ICE REGIMEN; 3 CYCLES AND BEAM CONSOLIDATION REGIMEN)
  17. ETOPOSIDE [Suspect]
     Active Substance: ETOPOSIDE
     Indication: Hodgkin^s disease stage IV
     Dosage: UNK
  18. ETOPOSIDE [Suspect]
     Active Substance: ETOPOSIDE
     Dosage: UNK
  19. IFOSFAMIDE [Suspect]
     Active Substance: IFOSFAMIDE
     Indication: Hodgkin^s disease stage IV
     Dosage: UNK
  20. CYCLOPHOSPHAMIDE [Suspect]
     Active Substance: CYCLOPHOSPHAMIDE
     Indication: Hodgkin^s disease stage IV
     Dosage: UNK, CYCLIC, ((BEACOPP REGIMEN; 2 CYCLES))
  21. BLEOMYCIN [Suspect]
     Active Substance: BLEOMYCIN SULFATE
     Indication: Hodgkin^s disease stage IV
     Dosage: UNK, CYCLIC
  22. BLEOMYCIN [Suspect]
     Active Substance: BLEOMYCIN SULFATE
     Dosage: UNK
  23. ATOVAQUONE [Concomitant]
     Active Substance: ATOVAQUONE
     Dosage: 750 MG, 2X/DAY
  24. PENICILLIN V [Concomitant]
     Active Substance: PENICILLIN V
     Dosage: 333 MG, 2X/DAY
  25. VALACYCLOVIR HYDROCHLORIDE [Concomitant]
     Active Substance: VALACYCLOVIR HYDROCHLORIDE
     Dosage: 500 MG, 1X/DAY

REACTIONS (6)
  - Acanthamoeba infection [Recovering/Resolving]
  - Meningoencephalitis amoebic [Recovering/Resolving]
  - Vasogenic cerebral oedema [Recovering/Resolving]
  - Cerebral mass effect [Recovering/Resolving]
  - Generalised tonic-clonic seizure [Recovering/Resolving]
  - Inappropriate antidiuretic hormone secretion [Recovering/Resolving]
